FAERS Safety Report 4264916-1 (Version None)
Quarter: 2004Q1

REPORT INFORMATION
  Report Type: 
  Country: None (occurrence: None)
  Receive Date: 20040105
  Receipt Date: 20031219
  Transmission Date: 20041129
  Serious: Yes (Hospitalization)
  Sender: FDA-Public Use
  Company Number: 200314852FR

PATIENT
  Age: 72 Year
  Sex: Male

DRUGS (9)
  1. CLAFORAN [Suspect]
     Dosage: 4 G/DAY
     Dates: start: 20030924, end: 20031004
  2. RIFAMPICIN [Suspect]
     Dates: start: 20030924, end: 20031008
  3. CIPROFLOXACIN [Suspect]
     Dosage: 500 MG BID PO
     Route: 048
     Dates: start: 20030915, end: 20030924
  4. GENTAMICIN SULFATE [Suspect]
     Dosage: 320 MG/DAY IV
     Route: 042
     Dates: start: 20030915, end: 20031006
  5. TAZOCILLINE POWDER + SOLVENT FOR INJECTION [Suspect]
     Dates: start: 20031004, end: 20031008
  6. HYDROCHLOROTHIAZIDE, CANDESARTAN CILEXETIL (HYTACAND) [Concomitant]
  7. FENOFIBRATE (LIPANTHYL ^THISSEN^) [Concomitant]
  8. DILTIAZEM HYDROCHLORIDE [Concomitant]
  9. PARACETAMOL, DEXTROPROPOXYPHENE HYDROCHLORIDE (DI-ANTALVIC) [Concomitant]

REACTIONS (4)
  - HEPATIC FUNCTION ABNORMAL [None]
  - HEPATITIS [None]
  - RENAL FAILURE [None]
  - STAPHYLOCOCCAL INFECTION [None]
